FAERS Safety Report 7090285-8 (Version None)
Quarter: 2010Q4

REPORT INFORMATION
  Report Type: 
  Country: None (occurrence: None)
  Receive Date: 20101105
  Receipt Date: 20101105
  Transmission Date: 20110411
  Serious: Yes (Other)
  Sender: FDA-Public Use
  Company Number: None

PATIENT
  Age: 58 Year
  Sex: Female
  Weight: 70 kg

DRUGS (2)
  1. MAGNEVIST [Suspect]
     Indication: MASS
     Dosage: 14CC 1   IV
     Route: 042
     Dates: start: 20101028
  2. MAGNEVIST [Suspect]
     Indication: NUCLEAR MAGNETIC RESONANCE IMAGING
     Dosage: 14CC 1   IV
     Route: 042
     Dates: start: 20101028

REACTIONS (4)
  - COUGH [None]
  - NASAL CONGESTION [None]
  - NAUSEA [None]
  - THROAT TIGHTNESS [None]
